FAERS Safety Report 6815395-9 (Version None)
Quarter: 2010Q3

REPORT INFORMATION
  Report Type: 
  Country: None (occurrence: None)
  Receive Date: 20100701
  Receipt Date: 20100701
  Transmission Date: 20110219
  Serious: Yes (Other)
  Sender: FDA-Public Use
  Company Number: None

PATIENT
  Sex: Female
  Weight: 81.8 kg

DRUGS (1)
  1. AVELOX [Suspect]
     Indication: SINUSITIS
     Dates: start: 20100128, end: 20100201

REACTIONS (4)
  - ASTHENIA [None]
  - DECREASED ACTIVITY [None]
  - IMPAIRED HEALING [None]
  - TENDON INJURY [None]
